FAERS Safety Report 18700658 (Version 1)
Quarter: 2021Q1

REPORT INFORMATION
  Report Type: Spontaneous
  Country: US (occurrence: US)
  Receive Date: 20210105
  Receipt Date: 20210105
  Transmission Date: 20210419
  Serious: No
  Sender: FDA-Public Use
  Company Number: US-ALLERGAN-2038785US

PATIENT
  Sex: Male

DRUGS (1)
  1. PREDNISOLONE ACETATE, 1.0% [Suspect]
     Active Substance: PREDNISOLONE ACETATE
     Indication: POSTOPERATIVE CARE
     Dosage: UNK
     Route: 065
     Dates: start: 20201006

REACTIONS (2)
  - Accidental exposure to product [Unknown]
  - Product container issue [Unknown]

NARRATIVE: CASE EVENT DATE: 20201006
